FAERS Safety Report 8165537-0 (Version None)
Quarter: 2012Q1

REPORT INFORMATION
  Report Type: 
  Country: None (occurrence: None)
  Receive Date: 20120103
  Receipt Date: 20111011
  Transmission Date: 20120608
  Serious: No
  Sender: FDA-Public Use
  Company Number: AE-2011-002233

PATIENT
  Age: 61 Year
  Sex: Male
  Weight: 74.8435 kg

DRUGS (6)
  1. INCIVEK [Suspect]
     Dosage: 2250 MG (750 MG,1 IN 8 HR)
     Dates: start: 20110918
  2. RIBAVIRIN [Concomitant]
  3. WELLBUTRIN [Concomitant]
  4. PEGASYS [Concomitant]
  5. DIOVAN [Concomitant]
  6. LIPITOR [Concomitant]

REACTIONS (2)
  - VISION BLURRED [None]
  - ABDOMINAL DISCOMFORT [None]
